FAERS Safety Report 8816823 (Version 1)
Quarter: 2012Q4

REPORT INFORMATION
  Report Type: Spontaneous
  Country: JP (occurrence: None)
  Receive Date: 20121001
  Receipt Date: 20121001
  Transmission Date: 20130627
  Serious: Yes (Other)
  Sender: FDA-Public Use
  Company Number: DSA_59879_2012

PATIENT
  Age: 72 Year
  Sex: Male

DRUGS (3)
  1. FLUOROURACIL (FLUOROURACIL) [Suspect]
     Indication: OROPHARYNGEAL CANCER STAGE UNSPECIFIED
     Dosage: (1250 mg daily)
  2. DOCETAXEL [Suspect]
     Indication: OROPHARYNGEAL CANCER
  3. CISPLATIN [Suspect]
     Indication: OROPHARYNGEAL CANCER STAGE UNSPECIFIED
     Dosage: (125 mg daily)

REACTIONS (7)
  - Inappropriate antidiuretic hormone secretion [None]
  - Blood pressure decreased [None]
  - Altered state of consciousness [None]
  - Nausea [None]
  - Vomiting [None]
  - Fall [None]
  - Haemorrhage [None]
